FAERS Safety Report 9243907 (Version 1)
Quarter: 2013Q1

REPORT INFORMATION
  Report Type: Spontaneous
  Country: US (occurrence: None)
  Receive Date: 20121123
  Receipt Date: 20121123
  Transmission Date: 20140127
  Serious: No
  Sender: FDA-Public Use
  Company Number: 361163

PATIENT
  Age: 60 Year
  Sex: Male

DRUGS (2)
  1. VICTOZA (LIRAGLUTIDE) SOLUTION FOR INJECTION, 6MG/ML [Suspect]
     Indication: DIABETES MELLITUS
     Dates: start: 20120911
  2. METFORMIN (METFORMIN) [Concomitant]

REACTIONS (1)
  - Goitre [None]
